FAERS Safety Report 9878199 (Version 2)
Quarter: 2014Q1

REPORT INFORMATION
  Report Type: Spontaneous
  Country: US (occurrence: US)
  Receive Date: 20140206
  Receipt Date: 20140225
  Transmission Date: 20141002
  Serious: Yes (Death, Other)
  Sender: FDA-Public Use
  Company Number: US-PFIZER INC-2014031666

PATIENT
  Age: 81 Year
  Sex: Male

DRUGS (1)
  1. VFEND [Suspect]
     Indication: ASPERGILLUS INFECTION
     Dosage: 200 MG, 2X/DAY
     Dates: start: 20131227, end: 20140122

REACTIONS (3)
  - Chronic lymphocytic leukaemia [Fatal]
  - Sepsis [Unknown]
  - Myocardial infarction [Unknown]
